FAERS Safety Report 7350448-0 (Version None)
Quarter: 2011Q1

REPORT INFORMATION
  Report Type: 
  Country: None (occurrence: None)
  Receive Date: 20110309
  Receipt Date: 20110309
  Transmission Date: 20110831
  Serious: No
  Sender: FDA-Public Use
  Company Number: None

PATIENT
  Sex: Female
  Weight: 68.2 kg

DRUGS (1)
  1. COPAXONE [Suspect]
     Indication: MULTIPLE SCLEROSIS
     Dosage: 20 MG DAILY SUB-Q
     Route: 058
     Dates: start: 20101001, end: 20110101

REACTIONS (5)
  - SPEECH DISORDER [None]
  - GAIT DISTURBANCE [None]
  - DYSPNOEA [None]
  - VISUAL IMPAIRMENT [None]
  - DRUG HYPERSENSITIVITY [None]
